FAERS Safety Report 18469140 (Version 7)
Quarter: 2024Q4

REPORT INFORMATION
  Report Type: Spontaneous
  Country: US (occurrence: US)
  Receive Date: 20201105
  Receipt Date: 20241217
  Transmission Date: 20250115
  Serious: No
  Sender: PFIZER
  Company Number: US-PFIZER INC-2020428007

PATIENT
  Age: 66 Year
  Sex: Female

DRUGS (2)
  1. XELJANZ [Suspect]
     Active Substance: TOFACITINIB CITRATE
     Indication: Rheumatoid arthritis
     Dosage: 5 MG, 2X/DAY
     Route: 048
  2. XELJANZ [Suspect]
     Active Substance: TOFACITINIB CITRATE
     Dosage: 5 MG, 1X/DAY
     Route: 048

REACTIONS (10)
  - Dizziness [Recovering/Resolving]
  - Headache [Recovering/Resolving]
  - Decreased immune responsiveness [Unknown]
  - Bronchial disorder [Unknown]
  - Accident [Unknown]
  - Illness [Recovering/Resolving]
  - Hypersensitivity [Recovering/Resolving]
  - Malaise [Unknown]
  - Off label use [Unknown]
  - Product prescribing issue [Unknown]
